FAERS Safety Report 18992065 (Version 1)
Quarter: 2021Q1

REPORT INFORMATION
  Report Type: Spontaneous
  Country: US (occurrence: US)
  Receive Date: 20210310
  Receipt Date: 20210310
  Transmission Date: 20210420
  Serious: No
  Sender: FDA-Public Use
  Company Number: US-UNITED THERAPEUTICS-UNT-2021-004239

PATIENT
  Sex: Male

DRUGS (2)
  1. REMODULIN [Suspect]
     Active Substance: TREPROSTINIL
     Indication: PULMONARY ARTERIAL HYPERTENSION
     Dosage: UNK, CONTINUING
     Route: 058
     Dates: start: 20201105
  2. REMODULIN [Suspect]
     Active Substance: TREPROSTINIL
     Dosage: 0.0172 ?G/KG, CONTINUING
     Route: 058

REACTIONS (4)
  - Insomnia [Unknown]
  - Blood glucose decreased [Unknown]
  - Oxygen consumption increased [Unknown]
  - Nasal congestion [Recovering/Resolving]
